FAERS Safety Report 5269159-0 (Version None)
Quarter: 2007Q1

REPORT INFORMATION
  Report Type: 
  Country: None (occurrence: None)
  Receive Date: 20070319
  Receipt Date: 20070312
  Transmission Date: 20070707
  Serious: Yes (Other)
  Sender: FDA-Public Use
  Company Number: IT-ROXANE LABORATORIES, INC-2007-BP-03479RO

PATIENT
  Age: 35 Year
  Sex: Female

DRUGS (4)
  1. LITHIUM CARBONATE [Suspect]
     Indication: DEPRESSION
     Dosage: 450 MG BID
     Dates: start: 20050701
  2. KIVEXA [Suspect]
     Indication: HIV INFECTION
     Dates: start: 20050901, end: 20051201
  3. ATAZANAVIR SULFATE [Suspect]
     Indication: HIV INFECTION
     Dates: start: 20050901, end: 20051201
  4. RITONAVIR [Suspect]
     Indication: HIV INFECTION
     Dates: start: 20050901

REACTIONS (5)
  - COMPULSIONS [None]
  - DEPRESSION [None]
  - DRUG INTERACTION [None]
  - DRUG LEVEL DECREASED [None]
  - PANIC REACTION [None]
